FAERS Safety Report 18015097 (Version 1)
Quarter: 2020Q3

REPORT INFORMATION
  Report Type: Spontaneous
  Country: US (occurrence: US)
  Receive Date: 20200713
  Receipt Date: 20200713
  Transmission Date: 20201103
  Serious: No
  Sender: FDA-Public Use
  Company Number: US-FOUNDATIONCONSUMERHC-2020-US-011730

PATIENT
  Age: 17 Year
  Sex: Female
  Weight: 61.24 kg

DRUGS (3)
  1. VITAMIN C [Concomitant]
     Active Substance: ASCORBIC ACID
  2. PROBIOTICS [Concomitant]
     Active Substance: PROBIOTICS NOS
  3. PLAN B ONE?STEP [Suspect]
     Active Substance: LEVONORGESTREL
     Indication: POST COITAL CONTRACEPTION
     Dosage: 1.5 MG
     Route: 048
     Dates: start: 20200528, end: 20200528

REACTIONS (3)
  - Vaginal haemorrhage [Recovered/Resolved]
  - Vaginal discharge [Recovered/Resolved]
  - Dysmenorrhoea [Recovered/Resolved]

NARRATIVE: CASE EVENT DATE: 20200601
